FAERS Safety Report 9968294 (Version 1)
Quarter: 2014Q1

REPORT INFORMATION
  Report Type: Report from Study
  Country: US (occurrence: US)
  Receive Date: 20140306
  Receipt Date: 20140306
  Transmission Date: 20141002
  Serious: No
  Sender: FDA-Public Use
  Company Number: US-ABBVIE-13P-163-1143039-00

PATIENT
  Sex: Female

DRUGS (15)
  1. HUMIRA [Suspect]
     Indication: RHEUMATOID ARTHRITIS
  2. SULFASALAZINE [Concomitant]
     Indication: ARTHRITIS
  3. SULFASALAZINE [Concomitant]
     Indication: SJOGREN^S SYNDROME
  4. PLAQUENIL [Concomitant]
     Indication: ARTHRITIS
  5. PLAQUENIL [Concomitant]
     Indication: SJOGREN^S SYNDROME
  6. SALAGEN [Concomitant]
     Indication: ARTHRITIS
  7. SALAGEN [Concomitant]
     Indication: SJOGREN^S SYNDROME
  8. PREDNISONE [Concomitant]
     Indication: ARTHRITIS
  9. PREDNISONE [Concomitant]
     Indication: SJOGREN^S SYNDROME
  10. NAPROXEN [Concomitant]
     Indication: ARTHRITIS
  11. NAPROXEN [Concomitant]
     Indication: SJOGREN^S SYNDROME
  12. TRAMADOL [Concomitant]
     Indication: ARTHRITIS
  13. TRAMADOL [Concomitant]
     Indication: SJOGREN^S SYNDROME
  14. TRAZODONE [Concomitant]
     Indication: ARTHRITIS
  15. TRAZODONE [Concomitant]
     Indication: SJOGREN^S SYNDROME

REACTIONS (1)
  - Fatigue [Not Recovered/Not Resolved]
